FAERS Safety Report 9643447 (Version 1)
Quarter: 2013Q4

REPORT INFORMATION
  Report Type: Spontaneous
  Country: US (occurrence: US)
  Receive Date: 20131024
  Receipt Date: 20131024
  Transmission Date: 20140711
  Serious: No
  Sender: FDA-Public Use
  Company Number: US-BAYER-2013-129261

PATIENT
  Age: 25 Year
  Sex: Male
  Weight: 79 kg

DRUGS (2)
  1. ALEVE CAPLET [Suspect]
     Dosage: 2 DF, PRN
     Route: 048
     Dates: start: 201308
  2. VENLAFAXINE [Concomitant]

REACTIONS (3)
  - Drug screen positive [None]
  - Extra dose administered [None]
  - Incorrect drug administration duration [None]
